FAERS Safety Report 15207940 (Version 1)
Quarter: 2018Q3

REPORT INFORMATION
  Report Type: Spontaneous
  Country: US (occurrence: US)
  Receive Date: 20180628
  Receipt Date: 20180628
  Transmission Date: 20181010
  Serious: Yes (Hospitalization)
  Sender: FDA-Public Use
  Company Number: None

PATIENT
  Age: 86 Year
  Sex: Female

DRUGS (14)
  1. SUCRALFATE. [Concomitant]
     Active Substance: SUCRALFATE
  2. DULOXETINE. [Concomitant]
     Active Substance: DULOXETINE
  3. RANITIDINE. [Concomitant]
     Active Substance: RANITIDINE
  4. COLCHICINE. [Concomitant]
     Active Substance: COLCHICINE
  5. PREMARIN VAGINAL [Concomitant]
     Active Substance: ESTROGENS, CONJUGATED
  6. FUROSEMIDE. [Concomitant]
     Active Substance: FUROSEMIDE
  7. VITAMIN D [Concomitant]
     Active Substance: CHOLECALCIFEROL
  8. AMLODIPINE [Concomitant]
     Active Substance: AMLODIPINE BESYLATE
  9. METHOCARBAMOL. [Concomitant]
     Active Substance: METHOCARBAMOL
  10. SILDENAFIL 20 MG [Suspect]
     Active Substance: SILDENAFIL
     Indication: PULMONARY ARTERIAL HYPERTENSION
     Route: 048
     Dates: start: 20170624
  11. TOVIAZ [Concomitant]
     Active Substance: FESOTERODINE FUMARATE
  12. METOPROL SUC [Concomitant]
  13. CLONAZEPAM. [Concomitant]
     Active Substance: CLONAZEPAM
  14. WARFARIN [Concomitant]
     Active Substance: WARFARIN

REACTIONS (1)
  - Drug dose omission [None]

NARRATIVE: CASE EVENT DATE: 2018
